FAERS Safety Report 24390605 (Version 4)
Quarter: 2024Q4

REPORT INFORMATION
  Report Type: Spontaneous
  Country: US (occurrence: US)
  Receive Date: 20241003
  Receipt Date: 20241220
  Transmission Date: 20250115
  Serious: No
  Sender: MICRO LABS
  Company Number: US-862174955-ML2024-05019

PATIENT
  Sex: Female

DRUGS (1)
  1. KETOROLAC TROMETHAMINE [Suspect]
     Active Substance: KETOROLAC TROMETHAMINE
     Indication: Product used for unknown indication
     Route: 047

REACTIONS (2)
  - Product dose omission issue [Unknown]
  - Product container issue [Unknown]
